FAERS Safety Report 5634288-6 (Version None)
Quarter: 2008Q1

REPORT INFORMATION
  Report Type: 
  Country: None (occurrence: None)
  Receive Date: 20080131
  Receipt Date: 20071024
  Transmission Date: 20080703
  Serious: Yes (Hospitalization, Other)
  Sender: FDA-Public Use
  Company Number: 163411USA

PATIENT
  Age: 21 Year
  Sex: Female

DRUGS (1)
  1. COPAXONE [Suspect]
     Indication: MULTIPLE SCLEROSIS
     Dosage: 20 MG, SUBCUTANEOUS
     Route: 058
     Dates: start: 20060913, end: 20070816

REACTIONS (3)
  - DISEASE PROGRESSION [None]
  - GRAND MAL CONVULSION [None]
  - MULTIPLE SCLEROSIS [None]
